FAERS Safety Report 13506242 (Version 1)
Quarter: 2017Q2

REPORT INFORMATION
  Report Type: Spontaneous
  Country: US (occurrence: US)
  Receive Date: 20170502
  Receipt Date: 20170502
  Transmission Date: 20170830
  Serious: No
  Sender: FDA-Public Use
  Company Number: US-ROCHE-1216784

PATIENT
  Sex: Female

DRUGS (3)
  1. CPT-11 [Concomitant]
     Active Substance: IRINOTECAN
  2. AVASTIN [Suspect]
     Active Substance: BEVACIZUMAB
     Indication: RECTOSIGMOID CANCER
     Route: 065
  3. XELODA [Suspect]
     Active Substance: CAPECITABINE
     Indication: RECTOSIGMOID CANCER
     Route: 065

REACTIONS (1)
  - Disease progression [Not Recovered/Not Resolved]
